FAERS Safety Report 7960197-3 (Version None)
Quarter: 2011Q4

REPORT INFORMATION
  Report Type: 
  Country: None (occurrence: None)
  Receive Date: 20111206
  Receipt Date: 20111201
  Transmission Date: 20120403
  Serious: Yes (Death)
  Sender: FDA-Public Use
  Company Number: PHHY2011EC105780

PATIENT
  Sex: Female

DRUGS (1)
  1. DIOVAN HCT [Suspect]
     Indication: HYPERTENSION
     Dosage: 1 DF, (160/25 MG ONE TABLET DAILY)
     Dates: start: 20060123, end: 20110530

REACTIONS (2)
  - CARDIO-RESPIRATORY ARREST [None]
  - OVARIAN CANCER [None]
